FAERS Safety Report 14668396 (Version 2)
Quarter: 2019Q3

REPORT INFORMATION
  Report Type: Spontaneous
  Country: US (occurrence: US)
  Receive Date: 20180322
  Receipt Date: 20190927
  Transmission Date: 20191004
  Serious: Yes (Hospitalization, Other)
  Sender: FDA-Public Use
  Company Number: US-MYLANLABS-2018M1016955

PATIENT
  Age: 10 Year
  Sex: Female

DRUGS (2)
  1. FLUOROURACIL. [Suspect]
     Active Substance: FLUOROURACIL
     Indication: NASOPHARYNGEAL CANCER STAGE III
     Dosage: 1000 MILLIGRAM/SQ. METER
     Route: 042
  2. CISPLATIN. [Concomitant]
     Active Substance: CISPLATIN
     Indication: NASOPHARYNGEAL CANCER STAGE III
     Dosage: 75 MILLIGRAM/SQ. METER
     Route: 065

REACTIONS (7)
  - Arteriospasm coronary [Recovered/Resolved]
  - Myocardial ischaemia [Recovered/Resolved]
  - Right ventricular dysfunction [Recovered/Resolved]
  - Haemodynamic instability [Recovered/Resolved]
  - Respiratory distress [Recovered/Resolved]
  - Left ventricular dysfunction [Recovered/Resolved]
  - Acidosis [Recovered/Resolved]
